FAERS Safety Report 18431330 (Version 1)
Quarter: 2020Q4

REPORT INFORMATION
  Report Type: Spontaneous
  Country: US (occurrence: US)
  Receive Date: 20201027
  Receipt Date: 20201027
  Transmission Date: 20210114
  Serious: Yes (Hospitalization)
  Sender: FDA-Public Use
  Company Number: None

PATIENT
  Age: 34 Year
  Sex: Female
  Weight: 114.8 kg

DRUGS (9)
  1. REMICADE [Concomitant]
     Active Substance: INFLIXIMAB
  2. CHLORTHALIDONE. [Concomitant]
     Active Substance: CHLORTHALIDONE
  3. ONDANSETRON [Concomitant]
     Active Substance: ONDANSETRON
  4. POTASSIUM [Concomitant]
     Active Substance: POTASSIUM
  5. REMICADE [Suspect]
     Active Substance: INFLIXIMAB
  6. METHOTREXATE. [Concomitant]
     Active Substance: METHOTREXATE
  7. ACETAMINOPHEN. [Concomitant]
     Active Substance: ACETAMINOPHEN
  8. NORGESTIMATE-ETHINYL ESTRADIOL [Concomitant]
     Active Substance: ETHINYL ESTRADIOL\NORGESTIMATE
  9. OMEPRAZOLE. [Concomitant]
     Active Substance: OMEPRAZOLE

REACTIONS (8)
  - Nausea [None]
  - Palpitations [None]
  - Headache [None]
  - Blood pressure increased [None]
  - Diarrhoea [None]
  - Fatigue [None]
  - Hypokalaemia [None]
  - Dizziness [None]

NARRATIVE: CASE EVENT DATE: 20191106
